FAERS Safety Report 19120937 (Version 1)
Quarter: 2021Q2

REPORT INFORMATION
  Report Type: Spontaneous
  Country: US (occurrence: US)
  Receive Date: 20210412
  Receipt Date: 20210412
  Transmission Date: 20210717
  Serious: No
  Sender: FDA-Public Use
  Company Number: None

PATIENT
  Age: 68 Year
  Sex: Female
  Weight: 52.65 kg

DRUGS (10)
  1. VITAMIN B12 [Concomitant]
     Active Substance: CYANOCOBALAMIN
  2. EMGALITY [Suspect]
     Active Substance: GALCANEZUMAB-GNLM
     Indication: MIGRAINE
     Dosage: ?          QUANTITY:1 INJECTION(S);?
  3. LYRICA [Concomitant]
     Active Substance: PREGABALIN
  4. FIORICET [Concomitant]
     Active Substance: ACETAMINOPHEN\BUTALBITAL\CAFFEINE
  5. VANCOMYCIN [Concomitant]
     Active Substance: VANCOMYCIN
  6. TYLENOL [Concomitant]
     Active Substance: ACETAMINOPHEN
  7. VITAMIN C [Concomitant]
     Active Substance: ASCORBIC ACID
  8. TRAMADOL. [Concomitant]
     Active Substance: TRAMADOL
  9. VITAMIN D [Concomitant]
     Active Substance: VITAMIN D NOS
  10. SACROMICES [Concomitant]

REACTIONS (6)
  - Anxiety [None]
  - Eyelid disorder [None]
  - Throat tightness [None]
  - Swelling face [None]
  - Dizziness [None]
  - Asthenia [None]

NARRATIVE: CASE EVENT DATE: 20210411
